FAERS Safety Report 11808350 (Version 2)
Quarter: 2016Q1

REPORT INFORMATION
  Report Type: Spontaneous
  Country: US (occurrence: US)
  Receive Date: 20151207
  Receipt Date: 20160122
  Transmission Date: 20160525
  Serious: Yes (Other)
  Sender: FDA-Public Use
  Company Number: US-009507513-1512USA002546

PATIENT
  Age: 69 Year
  Sex: Female
  Weight: 89.81 kg

DRUGS (13)
  1. COZAAR [Suspect]
     Active Substance: LOSARTAN POTASSIUM
     Indication: BLOOD PRESSURE ABNORMAL
     Dosage: 25 MG, ONCE A DAY
     Route: 048
  2. ZOCOR [Suspect]
     Active Substance: SIMVASTATIN
     Indication: BLOOD CHOLESTEROL ABNORMAL
     Dosage: 20 MG, EVERY NIGHT
     Route: 048
  3. PRILOSEC [Suspect]
     Active Substance: OMEPRAZOLE MAGNESIUM
     Indication: GASTROOESOPHAGEAL REFLUX DISEASE
     Dosage: 20 MG, ONCE A DAY
     Route: 048
     Dates: start: 2007
  4. MIRALAX [Concomitant]
     Active Substance: POLYETHYLENE GLYCOL 3350
     Indication: CONSTIPATION PROPHYLAXIS
     Dosage: ONE CAPFUL, DAILY
     Route: 048
     Dates: start: 2010
  5. XOPENEX [Concomitant]
     Active Substance: LEVALBUTEROL HYDROCHLORIDE
     Indication: RESPIRATORY DISORDER
     Dosage: RESCUE INHALER, AS NEEDED
     Route: 055
     Dates: start: 2005
  6. JANUVIA [Suspect]
     Active Substance: SITAGLIPTIN PHOSPHATE
     Indication: DIABETES MELLITUS
     Dosage: 50 MG, ONE A DAY
     Route: 048
  7. ZOLOFT [Concomitant]
     Active Substance: SERTRALINE HYDROCHLORIDE
     Indication: DEPRESSION
     Dosage: 150 MG, DAILY, BRAKES ONE 100MG TAB IN HALF
     Route: 048
     Dates: start: 1990
  8. XANAX [Concomitant]
     Active Substance: ALPRAZOLAM
     Indication: ANXIETY
     Dosage: 0.5 - 1MG, TAKES 1 MG AT NIGHTTIME, HALF TAB IN THE MORNING AND THE OTHER HALF AROUND 4PM, WHEN REQU
     Route: 048
     Dates: start: 1990
  9. LYRICA [Concomitant]
     Active Substance: PREGABALIN
     Indication: DIABETIC NEUROPATHY
     Dosage: 50 MG, TWICE A DAY
     Route: 048
     Dates: start: 20151118
  10. SYMBICORT [Concomitant]
     Active Substance: BUDESONIDE\FORMOTEROL FUMARATE DIHYDRATE
     Indication: CHRONIC OBSTRUCTIVE PULMONARY DISEASE
     Dosage: INHALER, TWICE A DAY
     Route: 055
     Dates: start: 2005
  11. SINGULAIR [Suspect]
     Active Substance: MONTELUKAST SODIUM
     Indication: LUNG DISORDER
     Dosage: 10 MG, ONCE A DAY
     Route: 048
  12. ASPIRIN. [Concomitant]
     Active Substance: ASPIRIN
     Indication: TRANSIENT ISCHAEMIC ATTACK
     Dosage: 81 MG, AT NIGHT
     Route: 048
     Dates: start: 2012
  13. OXYGEN. [Concomitant]
     Active Substance: OXYGEN
     Indication: OXYGEN SUPPLEMENTATION
     Dosage: 2 ML, AT NIGHT
     Dates: start: 2010

REACTIONS (12)
  - Dry eye [Not Recovered/Not Resolved]
  - Pancreatitis chronic [Not Recovered/Not Resolved]
  - Anxiety disorder [Recovering/Resolving]
  - Muscle spasms [Unknown]
  - Neuropathy peripheral [Unknown]
  - Arthralgia [Not Recovered/Not Resolved]
  - Feeling abnormal [Recovered/Resolved]
  - Myalgia [Unknown]
  - Rhinorrhoea [Not Recovered/Not Resolved]
  - Vision blurred [Unknown]
  - Depressed mood [Not Recovered/Not Resolved]
  - Drug ineffective [Unknown]

NARRATIVE: CASE EVENT DATE: 2014
